FAERS Safety Report 13767599 (Version 2)
Quarter: 2017Q3

REPORT INFORMATION
  Report Type: Spontaneous
  Country: JP (occurrence: JP)
  Receive Date: 20170719
  Receipt Date: 20170804
  Transmission Date: 20171127
  Serious: Yes (Death, Life-Threatening, Other)
  Sender: FDA-Public Use
  Company Number: JP-VIIV HEALTHCARE LIMITED-JP2017JPN109115

PATIENT
  Age: 44 Year
  Sex: Male

DRUGS (4)
  1. MOHRUS TAPE [Concomitant]
     Active Substance: KETOPROFEN
     Dosage: UNK
     Dates: start: 20170414
  2. AUGMENTIN 250RS [Concomitant]
     Dosage: 1 DF, TID
     Dates: start: 20170602, end: 20170608
  3. BIOFERMIN R (JAPAN) [Concomitant]
     Dosage: 1 DF, TID
     Dates: start: 20170602, end: 20170608
  4. TRIUMEQ [Suspect]
     Active Substance: ABACAVIR SULFATE\DOLUTEGRAVIR SODIUM\LAMIVUDINE
     Indication: HIV INFECTION
     Dosage: UNK
     Route: 048
     Dates: start: 20170317, end: 20170707

REACTIONS (1)
  - Completed suicide [Fatal]

NARRATIVE: CASE EVENT DATE: 20170707
